FAERS Safety Report 21560215 (Version 1)
Quarter: 2022Q4

REPORT INFORMATION
  Report Type: Spontaneous
  Country: US (occurrence: US)
  Receive Date: 20221107
  Receipt Date: 20221107
  Transmission Date: 20230112
  Serious: Yes (Other)
  Sender: FDA-Public Use
  Company Number: US-OTSUKA-2022_026178

PATIENT
  Sex: Female

DRUGS (7)
  1. NUEDEXTA [Suspect]
     Active Substance: DEXTROMETHORPHAN HYDROBROMIDE\QUINIDINE SULFATE
     Indication: Affect lability
     Dosage: 1 DF (EVERY 12 HOURS), BID
     Route: 065
     Dates: end: 202203
  2. PROZAC [Concomitant]
     Active Substance: FLUOXETINE HYDROCHLORIDE
     Indication: Depression
     Dosage: 10 MG, QD
     Route: 065
     Dates: start: 20220208, end: 20220308
  3. PROZAC [Concomitant]
     Active Substance: FLUOXETINE HYDROCHLORIDE
     Indication: Anxiety
  4. SEROQUEL XR [Concomitant]
     Active Substance: QUETIAPINE FUMARATE
     Indication: Insomnia
     Dosage: 300 MG, QD
     Route: 065
     Dates: start: 20220208
  5. REMERON [Concomitant]
     Active Substance: MIRTAZAPINE
     Indication: Anxiety
     Dosage: 45 MG, QD
     Route: 065
     Dates: start: 20220208
  6. REMERON [Concomitant]
     Active Substance: MIRTAZAPINE
     Indication: Insomnia
  7. CELECOXIB [Concomitant]
     Active Substance: CELECOXIB
     Indication: Product used for unknown indication
     Dosage: 20 MG, EVERY 2 WEEKS
     Route: 065
     Dates: start: 20220208

REACTIONS (2)
  - Serotonin syndrome [Recovered/Resolved]
  - Malnutrition [Unknown]
